FAERS Safety Report 19308654 (Version 4)
Quarter: 2022Q1

REPORT INFORMATION
  Report Type: Spontaneous
  Country: BR (occurrence: BR)
  Receive Date: 20210526
  Receipt Date: 20220208
  Transmission Date: 20220423
  Serious: Yes (Death, Life-Threatening, Hospitalization, Disabling)
  Sender: FDA-Public Use
  Company Number: US-CELGENE-BRA-20210506000

PATIENT
  Age: 68 Year
  Sex: Female

DRUGS (3)
  1. LENALIDOMIDE [Suspect]
     Active Substance: LENALIDOMIDE
     Indication: Plasma cell myeloma
     Route: 048
     Dates: start: 20190701, end: 20210517
  2. DARATUMUMAB [Suspect]
     Active Substance: DARATUMUMAB
     Indication: Plasma cell myeloma
     Dosage: 1800 MILLIGRAM
     Route: 058
     Dates: start: 20190701
  3. DEXAMETHASONE [Suspect]
     Active Substance: DEXAMETHASONE
     Indication: Plasma cell myeloma
     Route: 048
     Dates: start: 20190701, end: 20210517

REACTIONS (5)
  - COVID-19 pneumonia [Fatal]
  - Hyperglycaemia [Not Recovered/Not Resolved]
  - Leukopenia [Not Recovered/Not Resolved]
  - Septic shock [Not Recovered/Not Resolved]
  - Febrile neutropenia [Not Recovered/Not Resolved]

NARRATIVE: CASE EVENT DATE: 20210516
